FAERS Safety Report 9894083 (Version 1)
Quarter: 2014Q1

REPORT INFORMATION
  Report Type: Spontaneous
  Country: ES (occurrence: ES)
  Receive Date: 20140213
  Receipt Date: 20140213
  Transmission Date: 20141002
  Serious: Yes (Hospitalization, Other)
  Sender: FDA-Public Use
  Company Number: PHHY2013ES155446

PATIENT
  Age: 87 Year
  Sex: Male

DRUGS (2)
  1. ACENOCOUMAROL [Suspect]
     Indication: ATRIAL FIBRILLATION
  2. LEVOFLOXACIN [Interacting]
     Dosage: 500 MG, EVERY 12 HOURS

REACTIONS (4)
  - Renal impairment [Unknown]
  - Chronic obstructive pulmonary disease [Unknown]
  - International normalised ratio increased [Recovered/Resolved]
  - Drug interaction [Unknown]
